FAERS Safety Report 8470248-8 (Version None)
Quarter: 2012Q2

REPORT INFORMATION
  Report Type: 
  Country: None (occurrence: None)
  Receive Date: 20120627
  Receipt Date: 20120622
  Transmission Date: 20120825
  Serious: Yes (Other)
  Sender: FDA-Public Use
  Company Number: US-BAYER-2012-062878

PATIENT
  Age: 33 Year
  Sex: Female

DRUGS (4)
  1. MIRENA [Suspect]
     Indication: CONTRACEPTION
     Dosage: 20 MCG/24HR, CONT
     Route: 015
     Dates: start: 20120619
  2. MIRENA [Suspect]
     Indication: HORMONE LEVEL ABNORMAL
  3. MIRENA [Suspect]
     Indication: CROHN'S DISEASE
  4. MIRENA [Suspect]
     Indication: MENORRHAGIA

REACTIONS (3)
  - GENITAL HAEMORRHAGE [None]
  - TENDERNESS [None]
  - ABDOMINAL PAIN LOWER [None]
